FAERS Safety Report 7113765-5 (Version None)
Quarter: 2010Q4

REPORT INFORMATION
  Report Type: 
  Country: None (occurrence: None)
  Receive Date: 20101119
  Receipt Date: 20101108
  Transmission Date: 20110411
  Serious: Yes (Other)
  Sender: FDA-Public Use
  Company Number: US-PFIZER INC-2010133480

PATIENT
  Sex: Female
  Weight: 90.703 kg

DRUGS (5)
  1. LYRICA [Suspect]
     Indication: FIBROMYALGIA
     Dosage: 75 MG, 3X/DAY
     Route: 048
     Dates: start: 20050101, end: 20090501
  2. LYRICA [Suspect]
     Indication: FACIAL PAIN
     Dosage: 75 MG, 3X/DAY
     Dates: start: 20100801
  3. BUTALBITAL ACETAMINOPHEN AND CAFFEINE [Concomitant]
     Dosage: UNK
  4. ADDERALL 10 [Concomitant]
     Dosage: UNK
  5. TYLENOL W/ CODEINE NO. 3 [Concomitant]
     Dosage: UNK

REACTIONS (4)
  - DYSPNOEA [None]
  - DYSPNOEA EXERTIONAL [None]
  - SWELLING [None]
  - WEIGHT INCREASED [None]
